FAERS Safety Report 5238512-3 (Version None)
Quarter: 2007Q1

REPORT INFORMATION
  Report Type: 
  Country: None (occurrence: None)
  Receive Date: 20070215
  Receipt Date: 20070214
  Transmission Date: 20070707
  Serious: Yes (Other)
  Sender: FDA-Public Use
  Company Number: US-GLAXOSMITHKLINE-A0570944A

PATIENT
  Age: 70 Year
  Sex: Female

DRUGS (3)
  1. ADVAIR DISKUS 100/50 [Suspect]
     Indication: CHRONIC OBSTRUCTIVE PULMONARY DISEASE
     Dosage: 1PUFF TWICE PER DAY
     Route: 055
     Dates: start: 20040101
  2. PREMARIN [Concomitant]
  3. VITAMINS [Concomitant]

REACTIONS (16)
  - APHONIA [None]
  - BONE DENSITY DECREASED [None]
  - BONE DENSITY INCREASED [None]
  - CANDIDIASIS [None]
  - CATARACT [None]
  - DRUG INEFFECTIVE [None]
  - DYSPHAGIA [None]
  - DYSPHONIA [None]
  - DYSPNOEA [None]
  - MUSCULOSKELETAL PAIN [None]
  - PHARYNGEAL OEDEMA [None]
  - PHARYNGOLARYNGEAL DISCOMFORT [None]
  - PHARYNGOLARYNGEAL PAIN [None]
  - SINUSITIS [None]
  - THROAT IRRITATION [None]
  - WEIGHT INCREASED [None]
